FAERS Safety Report 20837106 (Version 2)
Quarter: 2022Q2

REPORT INFORMATION
  Report Type: Spontaneous
  Country: US (occurrence: US)
  Receive Date: 20220517
  Receipt Date: 20220526
  Transmission Date: 20220721
  Serious: No
  Sender: FDA-Public Use
  Company Number: US-LUPIN PHARMACEUTICALS INC.-2022-06942

PATIENT
  Age: 41 Year
  Weight: 90.703 kg

DRUGS (1)
  1. ESCITALOPRAM OXALATE [Suspect]
     Active Substance: ESCITALOPRAM OXALATE
     Indication: Anxiety
     Dosage: 20 MILLIGRAM, QD
     Route: 048

REACTIONS (3)
  - Tremor [Unknown]
  - Feeling abnormal [Unknown]
  - Product substitution issue [Unknown]
